FAERS Safety Report 6525051-2 (Version None)
Quarter: 2009Q4

REPORT INFORMATION
  Report Type: 
  Country: None (occurrence: None)
  Receive Date: 20091223
  Receipt Date: 20091211
  Transmission Date: 20100525
  Serious: Yes (Hospitalization, Other)
  Sender: FDA-Public Use
  Company Number: A-NJ2007-18694

PATIENT
  Age: 56 Year
  Sex: Female

DRUGS (21)
  1. TRACLEER [Suspect]
     Indication: PULMONARY ARTERIAL HYPERTENSION
     Dosage: 125 MG, BID, ORAL, 225 MG BID, ORAL
     Route: 048
     Dates: start: 20051229, end: 20060626
  2. TRACLEER [Suspect]
     Indication: PULMONARY ARTERIAL HYPERTENSION
     Dosage: 125 MG, BID, ORAL, 225 MG BID, ORAL
     Route: 048
     Dates: start: 20060627, end: 20061226
  3. TRACLEER [Suspect]
     Indication: PULMONARY ARTERIAL HYPERTENSION
     Dosage: 125 MG, BID, ORAL, 225 MG BID, ORAL
     Route: 048
     Dates: start: 20061227, end: 20091122
  4. TRACLEER [Suspect]
     Indication: PULMONARY ARTERIAL HYPERTENSION
     Dosage: 125 MG, BID, ORAL, 225 MG BID, ORAL
     Route: 048
     Dates: start: 20020123
  5. FLOLAN [Concomitant]
  6. SILDENAFIL CITRATE [Concomitant]
  7. ACTONEL [Concomitant]
  8. ADVAIR (SALMETEROL XINAFOATE, FLUTICASONE PROPIONATE) [Concomitant]
  9. ATROVENT [Concomitant]
  10. CARDIZEM [Concomitant]
  11. COUMADIN [Concomitant]
  12. POTASSIUM CHLORIDE [Concomitant]
  13. LANOXIN [Concomitant]
  14. NEURONTIN [Concomitant]
  15. PENLAC [Concomitant]
  16. PRAVACHOL [Concomitant]
  17. PREVACID [Concomitant]
  18. PRO-AIR (PROCATEROL HYDROCHLORIDE) [Concomitant]
  19. SINGULAIR [Concomitant]
  20. SPIRIVA [Concomitant]
  21. ZYRTEC [Concomitant]

REACTIONS (17)
  - ABDOMINAL PAIN UPPER [None]
  - ALANINE AMINOTRANSFERASE INCREASED [None]
  - ASPARTATE AMINOTRANSFERASE INCREASED [None]
  - BILIARY DILATATION [None]
  - BRAIN NATRIURETIC PEPTIDE INCREASED [None]
  - CHEST PAIN [None]
  - CHOLELITHIASIS [None]
  - DEHYDRATION [None]
  - DYSPHONIA [None]
  - FOOD POISONING [None]
  - GALLBLADDER POLYP [None]
  - HAEMATOCRIT DECREASED [None]
  - HYPERHIDROSIS [None]
  - HYPOTENSION [None]
  - OXYGEN SATURATION DECREASED [None]
  - PYREXIA [None]
  - WHITE BLOOD CELL COUNT INCREASED [None]
